FAERS Safety Report 9658602 (Version 2)
Quarter: 2013Q4

REPORT INFORMATION
  Report Type: Spontaneous
  Country: US (occurrence: US)
  Receive Date: 20131030
  Receipt Date: 20131030
  Transmission Date: 20140711
  Serious: Yes (Death)
  Sender: FDA-Public Use
  Company Number: US-NAPPMUNDI-USA-2011-0076553

PATIENT
  Age: 28 Year
  Sex: Male
  Weight: 87.53 kg

DRUGS (1)
  1. OXYCONTIN (NDA 22-272) [Suspect]
     Indication: DRUG ABUSE

REACTIONS (4)
  - Overdose [Fatal]
  - Drug abuse [Fatal]
  - Malaise [Unknown]
  - Unevaluable event [Unknown]
